FAERS Safety Report 8185780-4 (Version None)
Quarter: 2012Q1

REPORT INFORMATION
  Report Type: 
  Country: None (occurrence: None)
  Receive Date: 20120305
  Receipt Date: 20120228
  Transmission Date: 20120608
  Serious: Yes (Other)
  Sender: FDA-Public Use
  Company Number: US-FRI-1000028727

PATIENT
  Age: 80 Year
  Sex: Male

DRUGS (14)
  1. FLUTICASONE PROPIONATE [Concomitant]
  2. MAGNESIUM [Concomitant]
  3. DALIRESP [Suspect]
     Indication: CHRONIC OBSTRUCTIVE PULMONARY DISEASE
     Dosage: 500 MCG
     Route: 048
     Dates: start: 20120201
  4. VITAMIN B-12 [Concomitant]
  5. FAMOTIDINE [Concomitant]
     Dosage: 20 MG
     Route: 048
  6. CRESTOR [Concomitant]
     Dosage: 5 MG
     Route: 048
  7. ASPIRIN [Concomitant]
     Dosage: 81 MG
     Route: 048
  8. WARFARIN SODIUM [Concomitant]
     Indication: ATRIAL FIBRILLATION
     Dosage: 4 MG
     Route: 048
  9. METOPROLOL TARTRATE [Concomitant]
     Dosage: 50 MG
     Route: 048
  10. SPIRIVA [Concomitant]
     Indication: CHRONIC OBSTRUCTIVE PULMONARY DISEASE
  11. FLUOXETINE [Concomitant]
     Dosage: 20 MG
     Route: 048
  12. CALCIUM [Concomitant]
     Dosage: 1200 MG
     Route: 048
  13. FISH OIL [Concomitant]
  14. DIGOXIN [Concomitant]
     Indication: ATRIAL FIBRILLATION
     Dosage: 125 MCG
     Route: 048

REACTIONS (1)
  - MELAENA [None]
